FAERS Safety Report 5138148-9 (Version None)
Quarter: 2006Q4

REPORT INFORMATION
  Report Type: 
  Country: None (occurrence: None)
  Receive Date: 20061030
  Receipt Date: 20060424
  Transmission Date: 20070319
  Serious: No
  Sender: FDA-Public Use
  Company Number: US-GLAXOSMITHKLINE-A0602990A

PATIENT
  Age: 79 Year
  Sex: Male

DRUGS (8)
  1. ADVAIR HFA [Suspect]
     Dosage: 1PUFF TWICE PER DAY
     Route: 055
     Dates: start: 20060414
  2. FLOMAX [Concomitant]
  3. HYDROCHLOROTHIAZIDE [Concomitant]
  4. DETROL [Concomitant]
  5. NORVASC [Concomitant]
  6. ASPIRIN [Concomitant]
  7. NITROGLYCERIN [Concomitant]
  8. SINGULAIR [Concomitant]

REACTIONS (2)
  - DYSPHONIA [None]
  - OVERDOSE [None]
